FAERS Safety Report 19490647 (Version 1)
Quarter: 2021Q3

REPORT INFORMATION
  Report Type: Spontaneous
  Country: US (occurrence: US)
  Receive Date: 20210705
  Receipt Date: 20210705
  Transmission Date: 20211014
  Serious: Yes (Other)
  Sender: FDA-Public Use
  Company Number: US-ROCHE-2860058

PATIENT
  Age: 73 Year
  Sex: Male

DRUGS (1)
  1. GAVRETO [Suspect]
     Active Substance: PRALSETINIB
     Indication: LUNG NEOPLASM MALIGNANT
     Dosage: TAKE 4 CAPSULES (400 MG TOTAL) BY MOUTH DAILY ] TAKE 3 CAPSULES (300 MG TOTAL) BY MOUTH?DAILY
     Route: 048
     Dates: start: 20210416

REACTIONS (2)
  - Hypertension [Recovered/Resolved]
  - Renal impairment [Recovered/Resolved]

NARRATIVE: CASE EVENT DATE: 20210416
